FAERS Safety Report 13252535 (Version 1)
Quarter: 2017Q1

REPORT INFORMATION
  Report Type: Spontaneous
  Country: KR (occurrence: KR)
  Receive Date: 20170220
  Receipt Date: 20170220
  Transmission Date: 20170428
  Serious: Yes (Hospitalization, Other)
  Sender: FDA-Public Use
  Company Number: KR-SHENZHEN TECHDOW PHARMACEUTICAL CO. LTD-KR-2017TEC0000006

PATIENT
  Age: 34 Year
  Sex: Male

DRUGS (1)
  1. HEPARIN SODIUM INJECTION USP, PRESERVATIVE FREE [Suspect]
     Active Substance: HEPARIN SODIUM
     Indication: ACUTE MYOCARDIAL INFARCTION
     Dosage: UNK, CONTINUOUS

REACTIONS (6)
  - Asthenia [Recovering/Resolving]
  - Sensory disturbance [Recovering/Resolving]
  - Spinal cord compression [Recovering/Resolving]
  - Paraesthesia [Recovered/Resolved]
  - Hypoaesthesia [Recovering/Resolving]
  - Spinal cord haematoma [Recovered/Resolved]
